FAERS Safety Report 12974533 (Version 1)
Quarter: 2016Q4

REPORT INFORMATION
  Report Type: Other
  Country: CA (occurrence: CA)
  Receive Date: 20161125
  Receipt Date: 20161125
  Transmission Date: 20170207
  Serious: Yes (Other)
  Sender: FDA-Public Use
  Company Number: CA-APOTEX-2016AP014726

PATIENT
  Age: 3 Year
  Sex: Female

DRUGS (4)
  1. APO-TOBRAMYCIN [Suspect]
     Active Substance: TOBRAMYCIN
     Indication: POSTOPERATIVE CARE
     Dosage: 1 GTT, TID
     Route: 047
  2. APO-TOBRAMYCIN [Suspect]
     Active Substance: TOBRAMYCIN
     Dosage: UNK
     Route: 047
  3. APO-DEXAMETHASONE [Suspect]
     Active Substance: DEXAMETHASONE
     Indication: POSTOPERATIVE CARE
     Route: 047
  4. POVIDONE [Concomitant]
     Active Substance: POVIDONE
     Indication: POSTOPERATIVE CARE
     Dosage: 1 GTT, QD
     Route: 047

REACTIONS (6)
  - Eye swelling [Recovered/Resolved]
  - Eye abscess [Recovered/Resolved]
  - Drug administered to patient of inappropriate age [Recovered/Resolved]
  - Cellulitis orbital [Recovered/Resolved]
  - Ocular hyperaemia [Recovered/Resolved]
  - Eye pain [Recovered/Resolved]
